FAERS Safety Report 26139049 (Version 1)
Quarter: 2025Q4

REPORT INFORMATION
  Report Type: Spontaneous
  Country: EU (occurrence: EU)
  Receive Date: 20251210
  Receipt Date: 20251210
  Transmission Date: 20260118
  Serious: Yes (Other)
  Sender: RANBAXY
  Company Number: EU-SUN PHARMACEUTICAL INDUSTRIES INC-2025R1-539953

PATIENT
  Age: 37 Year
  Sex: Male

DRUGS (1)
  1. PREDNISONE [Suspect]
     Active Substance: PREDNISONE
     Indication: Steroid therapy
     Dosage: 20 MILLIGRAM, DAILY
     Route: 065
     Dates: end: 202507

REACTIONS (2)
  - Disease recurrence [Unknown]
  - Atrial fibrillation [Recovered/Resolved]
